FAERS Safety Report 5098085-5 (Version None)
Quarter: 2006Q3

REPORT INFORMATION
  Report Type: 
  Country: None (occurrence: None)
  Receive Date: 20060906
  Receipt Date: 20060407
  Transmission Date: 20061208
  Serious: No
  Sender: FDA-Public Use
  Company Number: US-GLAXOSMITHKLINE-A0600919A

PATIENT
  Age: 66 Year
  Sex: Female

DRUGS (7)
  1. REQUIP [Suspect]
     Indication: RESTLESS LEGS SYNDROME
     Dosage: 1MG PER DAY
     Route: 048
     Dates: start: 20060301, end: 20060405
  2. LEXAPRO [Concomitant]
  3. WELLBUTRIN XL [Concomitant]
  4. ZETIA [Concomitant]
  5. PREMARIN [Concomitant]
  6. BLOOD PRESSURE MEDICATION [Concomitant]
  7. FOSAMAX [Concomitant]

REACTIONS (3)
  - DIZZINESS [None]
  - OEDEMA PERIPHERAL [None]
  - SOMNOLENCE [None]
